FAERS Safety Report 25522614 (Version 1)
Quarter: 2025Q3

REPORT INFORMATION
  Report Type: Report from Study
  Country: US (occurrence: US)
  Receive Date: 20250707
  Receipt Date: 20250707
  Transmission Date: 20251020
  Serious: Yes (Hospitalization)
  Sender: BAUSCH AND LOMB
  Company Number: US-BAUSCHBL-2025BNL010169

PATIENT
  Age: 70 Year
  Sex: Female

DRUGS (1)
  1. MIEBO [Suspect]
     Active Substance: PERFLUOROHEXYLOCTANE
     Indication: Product used for unknown indication
     Dosage: INSTILL 1 DROP INTO BOTH EYES FOUR TIMES A DAY (MUST SEE PACKAGE INSERT FOR ADMIN INSTRUCTIONS)
     Route: 047

REACTIONS (2)
  - Burning sensation [Unknown]
  - Pain [Unknown]
